FAERS Safety Report 14202474 (Version 2)
Quarter: 2018Q1

REPORT INFORMATION
  Report Type: Spontaneous
  Country: US (occurrence: US)
  Receive Date: 20171117
  Receipt Date: 20180103
  Transmission Date: 20180508
  Serious: No
  Sender: FDA-Public Use
  Company Number: US-BAUSCH-BL-2017-021141

PATIENT
  Age: 22 Year
  Sex: Male

DRUGS (4)
  1. XENAZINE [Suspect]
     Active Substance: TETRABENAZINE
     Dosage: INSTRUCTED HIM TO INCREASE HIS DOSAGE TO TAKE 10 TABLETS PER DAY
     Route: 048
     Dates: start: 201707
  2. XENAZINE [Suspect]
     Active Substance: TETRABENAZINE
     Dosage: 9 TABLETS
     Route: 048
  3. XENAZINE [Suspect]
     Active Substance: TETRABENAZINE
     Indication: TOURETTE^S DISORDER
     Route: 048
     Dates: start: 201610
  4. XENAZINE [Suspect]
     Active Substance: TETRABENAZINE
     Dosage: 4 TABLETS BY MOUTH AT 5 AM, 4 TABLETS AT 12 NOON, AND 3 TABLETS AT 3 PM.
     Route: 048
     Dates: start: 201710

REACTIONS (4)
  - Drug administration error [Unknown]
  - Off label use [Not Recovered/Not Resolved]
  - Prescribed overdose [Unknown]
  - Drug dose omission [Unknown]

NARRATIVE: CASE EVENT DATE: 201610
